FAERS Safety Report 9168470 (Version 5)
Quarter: 2013Q3

REPORT INFORMATION
  Report Type: Spontaneous
  Country: IE (occurrence: IE)
  Receive Date: 20130318
  Receipt Date: 20130925
  Transmission Date: 20140515
  Serious: Yes (Hospitalization, Other)
  Sender: FDA-Public Use
  Company Number: PHFR2013IE001723

PATIENT
  Age: 50 Year
  Sex: Female

DRUGS (15)
  1. CLOZARIL [Suspect]
     Indication: SCHIZOPHRENIA
     Dosage: UNK
     Dates: start: 20010701
  2. CLOZARIL [Suspect]
     Dosage: 625 MG, UNK
     Route: 048
  3. CLOZARIL [Suspect]
     Dosage: 525 MG, (100 MG MANE, 425 MG TARDE)
     Route: 048
  4. NORIDAY [Concomitant]
     Indication: ORAL CONTRACEPTION
     Dosage: UNK
     Route: 048
  5. NORIDAY [Concomitant]
     Dosage: 350 MG, DAILY
     Route: 048
  6. CLONAZEPAM [Concomitant]
     Indication: ANXIETY
     Dosage: 1 MG, QD
  7. RANITIDINE [Concomitant]
     Indication: DYSPEPSIA
     Dosage: 150 MG, BID
     Route: 048
  8. FOLIC ACID [Concomitant]
     Dosage: 10 MG, UNK
     Route: 048
  9. FOLIC ACID [Concomitant]
     Dosage: 5 MG, ALTERNATE DAYS
  10. FOLIC ACID [Concomitant]
     Dosage: 5 MG, QD
  11. TOLTERODINE [Concomitant]
     Indication: MICTURITION URGENCY
     Dosage: 2 MG, BID
  12. SERTRALINE [Concomitant]
     Indication: DEPRESSION
     Dosage: 50 MG, QD
  13. HYOSCINE BUTYLBROMIDE [Concomitant]
     Dosage: 300 UG, BID
     Route: 048
  14. ZOPICLONE [Concomitant]
     Dosage: 7.5 MG, QHS
     Route: 048
  15. PANTOPRAZOLE [Concomitant]
     Dosage: 40 MG, DAILY
     Route: 048

REACTIONS (14)
  - Pneumonia [Unknown]
  - Lower respiratory tract infection [Recovered/Resolved]
  - Cough [Unknown]
  - General physical condition abnormal [Unknown]
  - Pyrexia [Unknown]
  - Pollakiuria [Unknown]
  - Vomiting [Unknown]
  - Fatigue [Unknown]
  - Serum ferritin increased [Not Recovered/Not Resolved]
  - Urinary tract infection [Recovered/Resolved]
  - Leukocytosis [Recovered/Resolved]
  - Neutrophil count increased [Unknown]
  - Agranulocytosis [Recovered/Resolved]
  - Blood folate increased [Not Recovered/Not Resolved]
